FAERS Safety Report 24528813 (Version 1)
Quarter: 2024Q4

REPORT INFORMATION
  Report Type: Spontaneous
  Country: US (occurrence: None)
  Receive Date: 20241018
  Receipt Date: 20241018
  Transmission Date: 20250115
  Serious: Yes (Death)
  Sender: Public
  Company Number: None

PATIENT
  Sex: Female

DRUGS (7)
  1. TERIFLUNOMIDE [Suspect]
     Active Substance: TERIFLUNOMIDE
     Indication: Multiple sclerosis
     Dosage: FREQUENCY : DAILY;?
     Route: 048
     Dates: start: 20230725
  2. ADVIL [Concomitant]
     Active Substance: IBUPROFEN
  3. BACLOFEN [Concomitant]
     Active Substance: BACLOFEN
  4. BD SHARPS MIS 1.5 QT [Concomitant]
  5. COPAXONE [Concomitant]
     Active Substance: GLATIRAMER ACETATE
  6. KP VITAMIN D [Concomitant]
  7. TYLENOL [Concomitant]
     Active Substance: ACETAMINOPHEN

REACTIONS (1)
  - Death [None]
